FAERS Safety Report 21660807 (Version 1)
Quarter: 2022Q4

REPORT INFORMATION
  Report Type: Spontaneous
  Country: DE (occurrence: DE)
  Receive Date: 20221130
  Receipt Date: 20221130
  Transmission Date: 20230113
  Serious: Yes (Other)
  Sender: FDA-Public Use
  Company Number: DE-ABBVIE-4216106

PATIENT
  Sex: Male

DRUGS (1)
  1. TESTOSTERONE [Suspect]
     Active Substance: TESTOSTERONE
     Indication: Product used for unknown indication
     Dosage: 2 STROKES SPREADING OVER BOTH ARMS

REACTIONS (3)
  - Cerebrovascular accident [Unknown]
  - Blood testosterone decreased [Unknown]
  - Therapeutic response decreased [Unknown]
